FAERS Safety Report 18819468 (Version 1)
Quarter: 2021Q1

REPORT INFORMATION
  Report Type: Spontaneous
  Country: FR (occurrence: FR)
  Receive Date: 20210201
  Receipt Date: 20210201
  Transmission Date: 20210419
  Serious: Yes (Death, Hospitalization)
  Sender: FDA-Public Use
  Company Number: FR-ENDO PHARMACEUTICALS INC-2021-000739

PATIENT

DRUGS (2)
  1. MELPHALAN HYDROCHLORIDE. [Suspect]
     Active Substance: MELPHALAN HYDROCHLORIDE
     Indication: METASTASES TO LIVER
  2. MELPHALAN HYDROCHLORIDE. [Suspect]
     Active Substance: MELPHALAN HYDROCHLORIDE
     Indication: UVEAL MELANOMA
     Dosage: 1.0 MG/KG INFUSION, UNKNOWN
     Route: 065

REACTIONS (2)
  - Off label use [Unknown]
  - Septic shock [Fatal]
